FAERS Safety Report 23301147 (Version 1)
Quarter: 2023Q4

REPORT INFORMATION
  Report Type: Other
  Country: GB (occurrence: GB)
  Receive Date: 20231215
  Receipt Date: 20231215
  Transmission Date: 20240110
  Serious: Yes (Other)
  Sender: FDA-Public Use
  Company Number: None

PATIENT
  Age: 47 Year
  Sex: Female
  Weight: 82 kg

DRUGS (2)
  1. CLARISCAN [Suspect]
     Active Substance: GADOTERATE MEGLUMINE
     Indication: Diagnostic procedure
     Dosage: 16 ML, SINGLE
     Route: 065
     Dates: start: 20231027, end: 20231027
  2. CLARISCAN [Suspect]
     Active Substance: GADOTERATE MEGLUMINE
     Indication: Product used for unknown indication

REACTIONS (6)
  - Yellow skin [Recovered/Resolved]
  - Vertigo [Not Recovered/Not Resolved]
  - Emotional distress [Recovered/Resolved with Sequelae]
  - Dyspnoea [Recovered/Resolved with Sequelae]
  - Palpitations [Recovered/Resolved with Sequelae]
  - Feeling cold [Recovered/Resolved with Sequelae]

NARRATIVE: CASE EVENT DATE: 20231030
